FAERS Safety Report 7606655-2 (Version None)
Quarter: 2011Q3

REPORT INFORMATION
  Report Type: 
  Country: None (occurrence: None)
  Receive Date: 20110705
  Receipt Date: 20110623
  Transmission Date: 20111222
  Serious: Yes (Death)
  Sender: FDA-Public Use
  Company Number: 2011SP029587

PATIENT
  Age: 63 Year
  Sex: Female

DRUGS (2)
  1. EBANTIL (URAPIDIL) [Suspect]
     Indication: PRODUCT USED FOR UNKNOWN INDICATION
  2. ROCURONIUM BROMIDE [Suspect]
     Indication: PRODUCT USED FOR UNKNOWN INDICATION

REACTIONS (4)
  - VICTIM OF ABUSE [None]
  - BLOOD PRESSURE DECREASED [None]
  - HEART RATE INCREASED [None]
  - CARDIAC FAILURE [None]
